FAERS Safety Report 13155023 (Version 1)
Quarter: 2017Q1

REPORT INFORMATION
  Report Type: Spontaneous
  Country: CA (occurrence: CA)
  Receive Date: 20170126
  Receipt Date: 20170126
  Transmission Date: 20170428
  Serious: Yes (Disabling)
  Sender: FDA-Public Use
  Company Number: CA-PFIZER INC-2017031601

PATIENT
  Age: 86 Year
  Sex: Male
  Weight: 99 kg

DRUGS (4)
  1. BRICANYL [Concomitant]
     Active Substance: TERBUTALINE SULFATE
     Dosage: 2.5 MG, UNK
     Route: 065
  2. RHINOCORT /00212602/ [Concomitant]
     Dosage: UNK
  3. PULMICORT TURBUHALER [Concomitant]
     Active Substance: BUDESONIDE
     Dosage: UNK
  4. PANTOPRAZOLE [Suspect]
     Active Substance: PANTOPRAZOLE SODIUM
     Indication: GASTROOESOPHAGEAL REFLUX DISEASE
     Dosage: 40 MG, QD
     Route: 048

REACTIONS (1)
  - Urinary retention [Recovered/Resolved]
